FAERS Safety Report 19480718 (Version 1)
Quarter: 2021Q2

REPORT INFORMATION
  Report Type: Report from Study
  Country: US (occurrence: US)
  Receive Date: 20210630
  Receipt Date: 20210630
  Transmission Date: 20210717
  Serious: Yes (Hospitalization, Other)
  Sender: FDA-Public Use
  Company Number: US-JAZZ-JPI-P-014366

PATIENT
  Age: 40 Year
  Sex: Female
  Weight: 60 kg

DRUGS (5)
  1. XYREM [Suspect]
     Active Substance: SODIUM OXYBATE
     Indication: CATAPLEXY
     Dosage: UNKNOWN SINGLE DOSE
     Route: 048
     Dates: start: 20070717, end: 20110306
  2. IRON [Concomitant]
     Active Substance: IRON
  3. XYREM [Suspect]
     Active Substance: SODIUM OXYBATE
     Indication: NARCOLEPSY
     Dosage: 3.75 GRAM, BID
     Route: 048
     Dates: start: 20110322
  4. MAGNESIUM [Suspect]
     Active Substance: MAGNESIUM
     Indication: FIBROMYALGIA
  5. ETONOGESTREL/ETHINYL ESTRADIOL [Concomitant]
     Active Substance: ETHINYL ESTRADIOL\ETONOGESTREL

REACTIONS (5)
  - Appendix disorder [Recovered/Resolved]
  - Intestinal ischaemia [Recovered/Resolved]
  - Short-bowel syndrome [Unknown]
  - Abdominal pain upper [Recovered/Resolved]
  - Postoperative adhesion [Recovered/Resolved]

NARRATIVE: CASE EVENT DATE: 200903
